FAERS Safety Report 14514008 (Version 1)
Quarter: 2018Q1

REPORT INFORMATION
  Report Type: Spontaneous
  Country: US (occurrence: US)
  Receive Date: 20180208
  Receipt Date: 20180208
  Transmission Date: 20180509
  Serious: Yes (Disabling)
  Sender: FDA-Public Use
  Company Number: None

PATIENT
  Age: 44 Year
  Sex: Male
  Weight: 92.25 kg

DRUGS (2)
  1. MULTIVITAMIN [Concomitant]
     Active Substance: VITAMINS
  2. ORAJEL ANTISEPTIC RINSE FOR ALL MOUTH SORES [Suspect]
     Active Substance: HYDROGEN PEROXIDE\MENTHOL
     Indication: STOMATITIS
     Dosage: ?          QUANTITY:2 TEASPOON(S);?
     Route: 048
     Dates: start: 20180201, end: 20180202

REACTIONS (2)
  - Facial paralysis [None]
  - Hypoaesthesia [None]

NARRATIVE: CASE EVENT DATE: 20180202
